FAERS Safety Report 8512753-1 (Version None)
Quarter: 2012Q3

REPORT INFORMATION
  Report Type: 
  Country: None (occurrence: None)
  Receive Date: 20120716
  Receipt Date: 20120711
  Transmission Date: 20120928
  Serious: No
  Sender: FDA-Public Use
  Company Number: US-PFIZER INC-2012168247

PATIENT
  Sex: Male
  Weight: 61.224 kg

DRUGS (10)
  1. ZOLOFT [Suspect]
     Dosage: 50 MG, UNK
     Dates: start: 20120614, end: 20120620
  2. ZOLOFT [Suspect]
     Dosage: 100 MG, UNK
     Dates: start: 20120621, end: 20120627
  3. ZOLOFT [Suspect]
     Dosage: 100 MG, UNK
     Dates: start: 20120709
  4. MULTI-VITAMINS [Concomitant]
     Dosage: UNK
  5. ZOLOFT [Suspect]
     Dosage: 150 MG, UNK
     Dates: start: 20120628, end: 20120703
  6. ZOLOFT [Suspect]
     Dosage: 200 MG, UNK
     Dates: start: 20120704, end: 20120708
  7. ZOLOFT [Suspect]
     Indication: OBSESSIVE-COMPULSIVE DISORDER
     Dosage: 25 MG, UNK
     Dates: start: 20120608, end: 20120613
  8. ZITHROMAX [Suspect]
     Indication: OROPHARYNGEAL PAIN
     Dosage: 500 MG, DAILY
     Dates: start: 20120601, end: 20120601
  9. VITAMIN D [Concomitant]
     Indication: VITAMIN D DEFICIENCY
     Dosage: 1000 IU, DAILY
  10. MAGNESIUM [Concomitant]
     Indication: MINERAL SUPPLEMENTATION
     Dosage: 615 MG, 1 PILL DAILY IRREGULARLY ON AND OFF BASIS

REACTIONS (6)
  - EJACULATION FAILURE [None]
  - DIARRHOEA [None]
  - SOMNOLENCE [None]
  - ERECTILE DYSFUNCTION [None]
  - NASOPHARYNGITIS [None]
  - OLIGURIA [None]
